FAERS Safety Report 4715588-0 (Version None)
Quarter: 2005Q3

REPORT INFORMATION
  Report Type: 
  Country: None (occurrence: None)
  Receive Date: 20050713
  Receipt Date: 20050308
  Transmission Date: 20060218
  Serious: Yes (Death)
  Sender: FDA-Public Use
  Company Number: 2005FR-00073

PATIENT
  Age: 73 Year
  Sex: Female
  Weight: 60 kg

DRUGS (6)
  1. ETODOLAC [Suspect]
     Indication: OSTEOARTHRITIS
     Dosage: 600 MG, ORAL
     Route: 048
     Dates: start: 20050104, end: 20050106
  2. CO-DYDRAMOL [Concomitant]
  3. DICLOFENAC SODIUM [Concomitant]
  4. ESCITALOPRAM OXALATE [Concomitant]
  5. GLUCOSAMINE [Concomitant]
  6. ENALAPRIL [Concomitant]

REACTIONS (2)
  - GASTRIC ULCER PERFORATION [None]
  - PERITONITIS [None]
